FAERS Safety Report 21231844 (Version 1)
Quarter: 2022Q3

REPORT INFORMATION
  Report Type: Other
  Country: US (occurrence: US)
  Receive Date: 20220819
  Receipt Date: 20220819
  Transmission Date: 20221026
  Serious: Yes (Hospitalization)
  Sender: FDA-Public Use
  Company Number: US-GBT-015378

PATIENT
  Sex: Female

DRUGS (2)
  1. OXBRYTA [Suspect]
     Active Substance: VOXELOTOR
     Indication: Sickle cell disease
     Route: 048
  2. PENICILLIN [Concomitant]
     Active Substance: PENICILLIN

REACTIONS (3)
  - Pain [Recovering/Resolving]
  - Haemoglobin decreased [Recovering/Resolving]
  - Product dose omission issue [Unknown]
